FAERS Safety Report 8099707-7 (Version None)
Quarter: 2012Q1

REPORT INFORMATION
  Report Type: 
  Country: None (occurrence: None)
  Receive Date: 20120129
  Receipt Date: 20111010
  Transmission Date: 20120608
  Serious: No
  Sender: FDA-Public Use
  Company Number: US-ABBOTT-11P-163-0852014-00

PATIENT
  Sex: Female

DRUGS (18)
  1. PLAQUENIL [Concomitant]
     Indication: RHEUMATOID ARTHRITIS
  2. FEXOFENADINE HYDROCHLORIDE [Concomitant]
     Indication: HYPERSENSITIVITY
  3. AMBIEN [Concomitant]
     Indication: INSOMNIA
  4. HUMIRA [Suspect]
     Indication: RHEUMATOID ARTHRITIS
     Dosage: INTERRUPTED
     Dates: start: 20110330
  5. METFORMIN HCL [Concomitant]
     Indication: PRODUCT USED FOR UNKNOWN INDICATION
  6. PLAQUENIL [Concomitant]
     Indication: AUTOIMMUNE DISORDER
  7. HYDRALAZINE HCL [Concomitant]
     Indication: HYPERTENSION
  8. IBUPROFEN [Concomitant]
     Indication: ARTHRALGIA
     Dosage: WITH MEALS
  9. METHOTREXATE [Concomitant]
     Indication: PRODUCT USED FOR UNKNOWN INDICATION
  10. GLIMEPIRIDE [Concomitant]
     Indication: PRODUCT USED FOR UNKNOWN INDICATION
  11. IBUPROFEN [Concomitant]
     Indication: FIBROMYALGIA
  12. HYDROCORTISONE [Concomitant]
     Indication: SKIN DISORDER
  13. PREDNISONE TAB [Concomitant]
     Indication: INFLAMMATION
     Dosage: TAPER WHEN INFECTION IS PRESENT
  14. PLAQUENIL [Concomitant]
     Indication: SYSTEMIC LUPUS ERYTHEMATOSUS
  15. PILOCARPINE [Concomitant]
     Indication: SJOGREN'S SYNDROME
     Dates: start: 20020101
  16. ATENOLOL [Concomitant]
     Indication: HYPERTENSION
  17. LISINOPRIL [Concomitant]
     Indication: PROPHYLAXIS
  18. SINGULAIR [Concomitant]
     Indication: ASTHMA

REACTIONS (14)
  - SWELLING [None]
  - BACTERIAL INFECTION [None]
  - ABDOMINAL PAIN [None]
  - ABSCESS DRAINAGE [None]
  - DRUG INEFFECTIVE [None]
  - INFLAMMATION [None]
  - JOINT SWELLING [None]
  - DIARRHOEA [None]
  - LIGAMENT SPRAIN [None]
  - FUNGAL INFECTION [None]
  - VULVOVAGINAL SWELLING [None]
  - IRRITABLE BOWEL SYNDROME [None]
  - OEDEMA GENITAL [None]
  - INJECTION SITE MASS [None]
